FAERS Safety Report 4336456-2 (Version None)
Quarter: 2004Q2

REPORT INFORMATION
  Report Type: 
  Country: None (occurrence: None)
  Receive Date: 20040409
  Receipt Date: 20040409
  Transmission Date: 20050107
  Serious: Yes (Other)
  Sender: FDA-Public Use
  Company Number: None

PATIENT
  Age: 69 Year
  Sex: Male

DRUGS (5)
  1. METFORMIN HCL [Suspect]
     Indication: DIABETES MELLITUS
     Dosage: 1 BID
     Dates: start: 20040101, end: 20040301
  2. GLYBURIDE [Concomitant]
  3. ZOCOR [Concomitant]
  4. FLOMAX [Concomitant]
  5. NEXIUM [Concomitant]

REACTIONS (2)
  - BLOOD GLUCOSE INCREASED [None]
  - PHARMACEUTICAL PRODUCT COMPLAINT [None]
